FAERS Safety Report 8784961 (Version 2)
Quarter: 2013Q1

REPORT INFORMATION
  Report Type: Spontaneous
  Country: US (occurrence: US)
  Receive Date: 20120914
  Receipt Date: 20130205
  Transmission Date: 20140127
  Serious: Yes (Hospitalization, Other)
  Sender: FDA-Public Use
  Company Number: US-JNJFOC-20120901648

PATIENT
  Age: 37 Year
  Sex: Female

DRUGS (1)
  1. TYLENOL PM [Suspect]
     Indication: PRODUCT USED FOR UNKNOWN INDICATION
     Dosage: 100 TABLETS
     Route: 048

REACTIONS (15)
  - Loss of consciousness [Recovered/Resolved]
  - Intentional overdose [Recovered/Resolved]
  - Blood pressure immeasurable [Recovered/Resolved]
  - Hypothermia [Recovered/Resolved]
  - Bradycardia [Recovered/Resolved]
  - Atrial fibrillation [Recovered/Resolved]
  - Ventricular extrasystoles [Unknown]
  - Agitation [Recovered/Resolved]
  - Restlessness [Recovered/Resolved]
  - Aspartate aminotransferase increased [Recovered/Resolved]
  - Alanine aminotransferase increased [Recovered/Resolved]
  - QRS axis abnormal [Recovered/Resolved]
  - Electrocardiogram QT prolonged [Recovered/Resolved]
  - Electrocardiogram QRS complex prolonged [Recovered/Resolved]
  - White blood cell count increased [Recovered/Resolved]
